FAERS Safety Report 20006617 (Version 2)
Quarter: 2021Q4

REPORT INFORMATION
  Report Type: Spontaneous
  Country: US (occurrence: US)
  Receive Date: 20211028
  Receipt Date: 20211111
  Transmission Date: 20220303
  Serious: Yes (Death, Hospitalization, Other)
  Sender: FDA-Public Use
  Company Number: US-AMGEN-USASP2021163030

PATIENT

DRUGS (6)
  1. CINACALCET HYDROCHLORIDE [Suspect]
     Active Substance: CINACALCET HYDROCHLORIDE
     Indication: Calciphylaxis
     Dosage: UNK
     Route: 065
  2. CINACALCET HYDROCHLORIDE [Suspect]
     Active Substance: CINACALCET HYDROCHLORIDE
     Indication: Off label use
  3. SODIUM THIOSULFATE [Concomitant]
     Active Substance: SODIUM THIOSULFATE
     Dosage: UNK
     Route: 042
  4. SODIUM THIOSULFATE [Concomitant]
     Active Substance: SODIUM THIOSULFATE
     Dosage: UNK
     Route: 026
  5. SEVELAMER [Concomitant]
     Active Substance: SEVELAMER
  6. PENTOXIFYLLINE [Concomitant]
     Active Substance: PENTOXIFYLLINE

REACTIONS (11)
  - Death [Fatal]
  - Hospitalisation [Unknown]
  - Cardiovascular disorder [Fatal]
  - Infection [Fatal]
  - End stage renal disease [Fatal]
  - Gastrointestinal disorder [Fatal]
  - Lung disorder [Fatal]
  - Calciphylaxis [Fatal]
  - Necrotising fasciitis [Fatal]
  - Pneumonia [Fatal]
  - Off label use [Unknown]
